FAERS Safety Report 21772693 (Version 4)
Quarter: 2023Q4

REPORT INFORMATION
  Report Type: Report from Study
  Country: US (occurrence: US)
  Receive Date: 20221223
  Receipt Date: 20231020
  Transmission Date: 20240110
  Serious: Yes (Hospitalization, Other)
  Sender: FDA-Public Use
  Company Number: US-GW PHARMA-2022-US-038226

PATIENT
  Age: 19 Year
  Sex: Male

DRUGS (4)
  1. EPIDIOLEX [Suspect]
     Active Substance: CANNABIDIOL
     Indication: Epilepsy
     Dosage: 20 MILLILITER
     Route: 048
     Dates: start: 202211
  2. EPIDIOLEX [Suspect]
     Active Substance: CANNABIDIOL
     Dosage: 10 MILLILITER, BID
     Route: 048
     Dates: start: 202211
  3. EPIDIOLEX [Suspect]
     Active Substance: CANNABIDIOL
     Dosage: 15 MILLILITER AT BEDTIME
  4. EPIDIOLEX [Suspect]
     Active Substance: CANNABIDIOL
     Dosage: GIVE 10 ML VIA G-TUBE EVERY MORNING AND 12 ML EVERY EVENING

REACTIONS (7)
  - Hospitalisation [Unknown]
  - Gastrostomy [Unknown]
  - Pneumonia [Unknown]
  - Dehydration [Unknown]
  - Septic shock [Unknown]
  - Seizure [Unknown]
  - Hospitalisation [Unknown]

NARRATIVE: CASE EVENT DATE: 20221222
